FAERS Safety Report 18915383 (Version 1)
Quarter: 2021Q1

REPORT INFORMATION
  Report Type: Spontaneous
  Country: US (occurrence: US)
  Receive Date: 20210219
  Receipt Date: 20210219
  Transmission Date: 20210420
  Serious: No
  Sender: FDA-Public Use
  Company Number: None

PATIENT
  Age: 25 Year
  Sex: Female
  Weight: 73.8 kg

DRUGS (14)
  1. POLYETHYLENE GLYCOL [Concomitant]
     Active Substance: POLYETHYLENE GLYCOLS
  2. ATORVASTATIN [Concomitant]
     Active Substance: ATORVASTATIN
  3. CONTOUR NEXT TEST STRIP [Concomitant]
  4. MULTIVITAMIN [Concomitant]
     Active Substance: VITAMINS
  5. DESMOPRESSIN [Concomitant]
     Active Substance: DESMOPRESSIN
  6. SYNTHROID [Concomitant]
     Active Substance: LEVOTHYROXINE SODIUM
  7. VENLAFAXINE [Concomitant]
     Active Substance: VENLAFAXINE HYDROCHLORIDE
  8. PANTOPRAZOLE [Concomitant]
     Active Substance: PANTOPRAZOLE
  9. VITAMIN D3 [Concomitant]
     Active Substance: CHOLECALCIFEROL
  10. AZELASTINE NASAL SPRAY [Concomitant]
     Active Substance: AZELASTINE
  11. HUMALOG [Concomitant]
     Active Substance: INSULIN LISPRO
  12. SERTRALINE [Suspect]
     Active Substance: SERTRALINE HYDROCHLORIDE
     Indication: ANXIETY
     Dosage: ?          QUANTITY:1 TABLET(S);?
     Route: 048
  13. ONDANSETRON [Concomitant]
     Active Substance: ONDANSETRON
  14. INSULIN PUMP [Concomitant]
     Active Substance: DEVICE\INSULIN NOS

REACTIONS (15)
  - Dizziness [None]
  - Headache [None]
  - Tinnitus [None]
  - Crying [None]
  - Head discomfort [None]
  - Abdominal distension [None]
  - Ear pain [None]
  - Musculoskeletal stiffness [None]
  - Vomiting [None]
  - Pallor [None]
  - Somnolence [None]
  - Pyrexia [None]
  - Nausea [None]
  - Feeling abnormal [None]
  - Blood sodium decreased [None]

NARRATIVE: CASE EVENT DATE: 20210210
